FAERS Safety Report 5667539-2 (Version None)
Quarter: 2008Q1

REPORT INFORMATION
  Report Type: 
  Country: None (occurrence: None)
  Receive Date: 20080315
  Receipt Date: 20080124
  Transmission Date: 20080703
  Serious: No
  Sender: FDA-Public Use
  Company Number: US-ABBOTT-08P-163-0435317-00

PATIENT
  Sex: Male
  Weight: 104.42 kg

DRUGS (4)
  1. HUMIRA [Suspect]
     Indication: RHEUMATOID ARTHRITIS
     Route: 058
     Dates: start: 20080115
  2. HYDROXYCHLOROQUINE PHOSPHATE [Concomitant]
     Indication: RHEUMATOID ARTHRITIS
  3. VICODIN [Concomitant]
     Indication: PAIN
  4. MORPHINE SULFATE [Concomitant]
     Indication: PAIN

REACTIONS (9)
  - CHILLS [None]
  - HYPERHIDROSIS [None]
  - INFLUENZA LIKE ILLNESS [None]
  - INJECTION SITE PAIN [None]
  - INJECTION SITE PRURITUS [None]
  - INJECTION SITE REACTION [None]
  - INJECTION SITE URTICARIA [None]
  - NAUSEA [None]
  - PYREXIA [None]
